FAERS Safety Report 7543750-0 (Version None)
Quarter: 2011Q2

REPORT INFORMATION
  Report Type: 
  Country: None (occurrence: None)
  Receive Date: 20110613
  Receipt Date: 20040721
  Transmission Date: 20111010
  Serious: Yes (Hospitalization)
  Sender: FDA-Public Use
  Company Number: PHHO2004CO06110

PATIENT
  Sex: Male

DRUGS (4)
  1. BETALOC [Concomitant]
     Indication: HYPERTENSION
     Dosage: 2 DF, BID
  2. DIOVAN [Suspect]
     Indication: HYPERTENSION
     Dosage: 80 MG, QD
     Route: 048
     Dates: start: 20040201
  3. ASPIRIN [Concomitant]
     Indication: PLATELET AGGREGATION
     Dosage: 1 DF, QD
  4. PRAVACHOL [Concomitant]
     Dosage: 1 DF, QD

REACTIONS (1)
  - ANGINA UNSTABLE [None]
